FAERS Safety Report 15891547 (Version 1)
Quarter: 2019Q1

REPORT INFORMATION
  Report Type: Spontaneous
  Country: US (occurrence: US)
  Receive Date: 20190130
  Receipt Date: 20190130
  Transmission Date: 20190417
  Serious: No
  Sender: FDA-Public Use
  Company Number: US-ALLERGAN-1840417US

PATIENT
  Age: 38 Year
  Sex: Female

DRUGS (4)
  1. VIIBRYD [Suspect]
     Active Substance: VILAZODONE HYDROCHLORIDE
     Indication: DEPRESSION
     Dosage: 2.5 MG, QD FOR 4 DAYS
     Route: 048
     Dates: start: 20180807, end: 20180810
  2. VIIBRYD [Suspect]
     Active Substance: VILAZODONE HYDROCHLORIDE
     Indication: ANXIETY
     Dosage: 5 MG, QD FOR  TWO DAYS
     Route: 048
     Dates: start: 20180811, end: 20180812
  3. LIQUORICE                          /01125801/ [Concomitant]
     Active Substance: GLYCYRRHIZA GLABRA
     Dosage: UNK
  4. MAGNESIUM [Concomitant]
     Active Substance: MAGNESIUM
     Dosage: UNK

REACTIONS (8)
  - Off label use [Unknown]
  - Fatigue [Unknown]
  - Haematochezia [Not Recovered/Not Resolved]
  - Decreased appetite [Unknown]
  - Abdominal discomfort [Unknown]
  - Wrong technique in product usage process [Unknown]
  - Nausea [Unknown]
  - Incorrect dose administered [Unknown]

NARRATIVE: CASE EVENT DATE: 20180813
